FAERS Safety Report 19488823 (Version 1)
Quarter: 2021Q3

REPORT INFORMATION
  Report Type: Spontaneous
  Country: IN (occurrence: IN)
  Receive Date: 20210702
  Receipt Date: 20210702
  Transmission Date: 20211014
  Serious: Yes (Hospitalization)
  Sender: FDA-Public Use
  Company Number: IN-BAUSCH-BL-2021-022165

PATIENT
  Sex: Male

DRUGS (1)
  1. PENICILLAMINE [Suspect]
     Active Substance: PENICILLAMINE
     Indication: PRODUCT USED FOR UNKNOWN INDICATION
     Route: 065

REACTIONS (4)
  - General physical health deterioration [Unknown]
  - Hospitalisation [Unknown]
  - Weight decreased [Unknown]
  - Furuncle [Unknown]
